FAERS Safety Report 14782154 (Version 1)
Quarter: 2018Q2

REPORT INFORMATION
  Report Type: Report from Study
  Country: US (occurrence: US)
  Receive Date: 20180420
  Receipt Date: 20180420
  Transmission Date: 20180711
  Serious: Yes (Hospitalization)
  Sender: FDA-Public Use
  Company Number: US-ROCHE-1950426

PATIENT
  Age: 49 Year
  Sex: Male
  Weight: 97.16 kg

DRUGS (19)
  1. OMEPRAZOLE. [Concomitant]
     Active Substance: OMEPRAZOLE
     Dosage: ONGOING: YES
     Route: 048
     Dates: start: 20170315
  2. SYNTHROID [Concomitant]
     Active Substance: LEVOTHYROXINE SODIUM
     Route: 048
  3. FLOVENT [Concomitant]
     Active Substance: FLUTICASONE PROPIONATE
     Dosage: INHALE 3 PUFFS
     Route: 045
     Dates: start: 20170228
  4. COMBIGAN [Concomitant]
     Active Substance: BRIMONIDINE TARTRATE\TIMOLOL MALEATE
     Dosage: INSTILL DROP IN RIGHT EYE
     Route: 031
     Dates: start: 20170125
  5. DUREZOL [Concomitant]
     Active Substance: DIFLUPREDNATE
     Route: 031
  6. AMOXICILLIN. [Concomitant]
     Active Substance: AMOXICILLIN
     Route: 048
  7. METOLAZONE. [Concomitant]
     Active Substance: METOLAZONE
     Route: 048
  8. CELLCEPT [Suspect]
     Active Substance: MYCOPHENOLATE MOFETIL\MYCOPHENOLATE MOFETIL HYDROCHLORIDE
     Route: 048
     Dates: start: 20170410
  9. ATROPINE. [Concomitant]
     Active Substance: ATROPINE
     Route: 031
  10. LISINOPRIL. [Concomitant]
     Active Substance: LISINOPRIL
     Dosage: ONGOING: YES
     Route: 031
  11. LISINOPRIL. [Concomitant]
     Active Substance: LISINOPRIL
     Dosage: ONGOING: YES
     Route: 048
  12. NIFEDIPINE. [Concomitant]
     Active Substance: NIFEDIPINE
     Route: 048
     Dates: start: 20170125
  13. COMBIGAN [Concomitant]
     Active Substance: BRIMONIDINE TARTRATE\TIMOLOL MALEATE
     Dosage: ONGOING: YES
     Route: 031
  14. CYMBALTA [Concomitant]
     Active Substance: DULOXETINE HYDROCHLORIDE
     Dosage: ONGOING: YES
     Route: 048
     Dates: start: 20170228
  15. CELLCEPT [Suspect]
     Active Substance: MYCOPHENOLATE MOFETIL\MYCOPHENOLATE MOFETIL HYDROCHLORIDE
     Indication: PRODUCT USED FOR UNKNOWN INDICATION
     Dosage: 3 TABLET TWICE A DAY
     Route: 048
     Dates: start: 201702
  16. SYNTHROID [Concomitant]
     Active Substance: LEVOTHYROXINE SODIUM
     Route: 048
  17. CELLCEPT [Suspect]
     Active Substance: MYCOPHENOLATE MOFETIL\MYCOPHENOLATE MOFETIL HYDROCHLORIDE
     Route: 048
  18. MELOXICAM. [Concomitant]
     Active Substance: MELOXICAM
     Route: 048
  19. ATROPINE. [Concomitant]
     Active Substance: ATROPINE
     Dosage: INSTILL DROP IN LEFT EYE
     Route: 031
     Dates: start: 20170125

REACTIONS (8)
  - Glaucoma [Unknown]
  - Dyspnoea [Unknown]
  - Oedema [Unknown]
  - Abdominal pain upper [Unknown]
  - Nocturia [Unknown]
  - Hyponatraemia [Unknown]
  - Visual impairment [Unknown]
  - Cough [Unknown]

NARRATIVE: CASE EVENT DATE: 201702
